FAERS Safety Report 14082775 (Version 1)
Quarter: 2017Q4

REPORT INFORMATION
  Report Type: Spontaneous
  Country: US (occurrence: US)
  Receive Date: 20171012
  Receipt Date: 20171012
  Transmission Date: 20180321
  Serious: No
  Sender: FDA-Public Use
  Company Number: US-MYLANLABS-2017M1056214

PATIENT
  Sex: Female
  Weight: 90.7 kg

DRUGS (1)
  1. MIDNITE PM (BROMELAIN, MELATONIN, LEMON BALM, CHAMOMILE, LAVENDER) [Suspect]
     Active Substance: MELATONIN
     Indication: INSOMNIA
     Dosage: 1 DF, A DAY, PRN
     Route: 048
     Dates: start: 201708

REACTIONS (1)
  - Drug ineffective [Unknown]

NARRATIVE: CASE EVENT DATE: 201708
